FAERS Safety Report 10855790 (Version 1)
Quarter: 2015Q1

REPORT INFORMATION
  Report Type: Spontaneous
  Country: US (occurrence: US)
  Receive Date: 20150223
  Receipt Date: 20150223
  Transmission Date: 20150721
  Serious: Yes (Death, Hospitalization)
  Sender: FDA-Public Use
  Company Number: PHHY2015US017465

PATIENT
  Age: 59 Year
  Sex: Female

DRUGS (2)
  1. TYLENOL [Concomitant]
     Active Substance: ACETAMINOPHEN
     Indication: UPPER RESPIRATORY TRACT INFECTION
     Route: 065
  2. ISONIAZID. [Suspect]
     Active Substance: ISONIAZID
     Indication: LATENT TUBERCULOSIS
     Route: 065

REACTIONS (11)
  - Hepatotoxicity [Fatal]
  - Jaundice [Unknown]
  - Asthenia [Unknown]
  - Abdominal pain [Unknown]
  - Hepatic enzyme abnormal [Unknown]
  - International normalised ratio increased [Unknown]
  - Drug-induced liver injury [Unknown]
  - Hepatic necrosis [Unknown]
  - Hepatic steatosis [Unknown]
  - Vomiting [Unknown]
  - Ocular icterus [Unknown]
